FAERS Safety Report 20916578 (Version 1)
Quarter: 2022Q2

REPORT INFORMATION
  Report Type: Spontaneous
  Country: US (occurrence: US)
  Receive Date: 20220605
  Receipt Date: 20220605
  Transmission Date: 20220720
  Serious: Yes (Life-Threatening)
  Sender: FDA-Public Use
  Company Number: US-drreddys-LIT/USA/22/0150677

PATIENT
  Age: 8 Week
  Sex: Male

DRUGS (12)
  1. FOSPHENYTOIN SODIUM [Suspect]
     Active Substance: FOSPHENYTOIN SODIUM
     Indication: Status epilepticus
  2. FOSPHENYTOIN SODIUM [Suspect]
     Active Substance: FOSPHENYTOIN SODIUM
     Dosage: ALONG WITH LACOSAMIDE 20MG
  3. LEVETIRACETAM [Suspect]
     Active Substance: LEVETIRACETAM
     Indication: Status epilepticus
     Dosage: 40 MG/KG/DAY DIVIDED INTO TWO TIMES PER DAY
  4. LEVETIRACETAM [Suspect]
     Active Substance: LEVETIRACETAM
  5. LEVETIRACETAM [Suspect]
     Active Substance: LEVETIRACETAM
     Dosage: DISCHARGED HOME ON PHENYTOIN, LEVETIRACETAM AND OFF-LABEL LACOSAMIDE ANTIEPILEPTICS
  6. PHENOBARBITAL [Suspect]
     Active Substance: PHENOBARBITAL
     Indication: Status epilepticus
     Dosage: 5 MG/KG/DAY DIVIDED INTO TWO TIMES PER DAY
  7. PHENOBARBITAL [Suspect]
     Active Substance: PHENOBARBITAL
  8. BENZODIAZEPINE [Suspect]
     Active Substance: BENZODIAZEPINE
     Indication: Status epilepticus
  9. MIDAZOLAM [Suspect]
     Active Substance: MIDAZOLAM
     Indication: Status epilepticus
     Dosage: SLOWLY TITRATED FROM 0.05 MG/KG/HOUR TO 0.15 MG/KG/HOUR OVER 11 HOURS
  10. MIDAZOLAM [Suspect]
     Active Substance: MIDAZOLAM
     Dosage: WEANED OFF
  11. LACOSAMIDE [Concomitant]
     Active Substance: LACOSAMIDE
     Indication: Status epilepticus
     Dosage: LOADING DOSE OF 20 MG (~4 MG/KG)
     Route: 042
  12. LACOSAMIDE [Concomitant]
     Active Substance: LACOSAMIDE
     Dosage: ANOTHER LOAD OF OFF-LABEL LACOSAMIDE 20MG ALONG WITH A LOAD OF FOSPHENYTOIN 20 MG/KG
     Route: 042

REACTIONS (1)
  - Drug ineffective [Unknown]
